FAERS Safety Report 21348431 (Version 3)
Quarter: 2023Q1

REPORT INFORMATION
  Report Type: Report from Study
  Country: BR (occurrence: BR)
  Receive Date: 20220919
  Receipt Date: 20230321
  Transmission Date: 20230417
  Serious: Yes (Other)
  Sender: FDA-Public Use
  Company Number: BR-NOVARTISPH-NVSC2022BR210510

PATIENT
  Sex: Female

DRUGS (3)
  1. COSENTYX [Suspect]
     Active Substance: SECUKINUMAB
     Indication: Psoriatic arthropathy
     Dosage: 300 MG, QW (150 MG/ML, 2 PENS))
     Route: 058
  2. COSENTYX [Suspect]
     Active Substance: SECUKINUMAB
     Dosage: 300 MG, QMO (NOT STARTED) (150 MG/ML, 2 PENS)
     Route: 058
  3. COSENTYX [Suspect]
     Active Substance: SECUKINUMAB
     Dosage: UNK
     Route: 065
     Dates: start: 20221106

REACTIONS (12)
  - Diabetes mellitus [Not Recovered/Not Resolved]
  - Pain [Unknown]
  - Pain of skin [Unknown]
  - Myalgia [Unknown]
  - Visual impairment [Unknown]
  - Skin lesion [Unknown]
  - Dry skin [Unknown]
  - Sensation of foreign body [Unknown]
  - Furuncle [Unknown]
  - Peripheral swelling [Unknown]
  - Skin reaction [Unknown]
  - Product prescribing error [Not Recovered/Not Resolved]
